FAERS Safety Report 4613709-1 (Version None)
Quarter: 2005Q1

REPORT INFORMATION
  Report Type: 
  Country: None (occurrence: None)
  Receive Date: 20050315
  Receipt Date: 20040818
  Transmission Date: 20050727
  Serious: Yes (Hospitalization)
  Sender: FDA-Public Use
  Company Number: 8723

PATIENT
  Age: 56 Year
  Sex: Female

DRUGS (8)
  1. METHOTREXATE [Suspect]
     Indication: ARTHRITIS
     Dosage: 20 MG WEEKLY PO
     Route: 048
     Dates: start: 20010101
  2. LANSOPRAZOLE [Concomitant]
  3. PRENDISOLONE [Concomitant]
  4. FOLIC ACID [Concomitant]
  5. COD-LIVER OIL [Concomitant]
  6. ALENDRONATE SODIUM [Concomitant]
  7. CALCIUM CARBONATE [Concomitant]
  8. PEPPERMINT OIL [Concomitant]

REACTIONS (2)
  - ABDOMINAL PAIN LOWER [None]
  - CONSTIPATION [None]
